APPROVED DRUG PRODUCT: ARIPIPRAZOLE
Active Ingredient: ARIPIPRAZOLE
Strength: 30MG
Dosage Form/Route: TABLET;ORAL
Application: A078708 | Product #003
Applicant: TEVA PHARMACEUTICALS USA
Approved: Apr 28, 2015 | RLD: No | RS: No | Type: DISCN